FAERS Safety Report 8439353 (Version 2)
Quarter: 2012Q4

REPORT INFORMATION
  Report Type: Spontaneous
  Country: US (occurrence: None)
  Receive Date: 20120104
  Receipt Date: 20120508
  Transmission Date: 20130627
  Serious: No
  Sender: FDA-Public Use
  Company Number: 2011HGS-002682

PATIENT
  Age: 50 Year
  Sex: Female
  Weight: 65.32 kg

DRUGS (20)
  1. BENLYSTA [Suspect]
     Indication: SYSTEMIC LUPUS ERYTHEMATOSUS
     Dosage: 1 IN 14 D, INTRAVENOUS DRIP
     Route: 041
     Dates: start: 20110921, end: 20110921
  2. BENLYSTA [Suspect]
     Indication: SYSTEMIC LUPUS ERYTHEMATOSUS
     Dosage: 1 IN 14 D, INTRAVENOUS DRIP
     Route: 041
     Dates: start: 20110701, end: 20110701
  3. BENLYSTA [Suspect]
     Indication: SYSTEMIC LUPUS ERYTHEMATOSUS
     Dosage: 1 IN 14 D, INTRAVENOUS DRIP
     Route: 041
     Dates: start: 20110827, end: 20110827
  4. BENLYSTA [Suspect]
     Indication: SYSTEMIC LUPUS ERYTHEMATOSUS
     Dosage: 1 IN 14 D, INTRAVENOUS DRIP
     Route: 041
     Dates: start: 20110729, end: 20110729
  5. BENLYSTA [Suspect]
     Indication: SYSTEMIC LUPUS ERYTHEMATOSUS
     Dosage: 1 IN 14 D, INTRAVENOUS DRIP
     Route: 041
     Dates: start: 20110715, end: 20110715
  6. BENLYSTA [Suspect]
     Indication: SYSTEMIC LUPUS ERYTHEMATOSUS
     Dosage: 613 mg, 1 in 14 d, intravenous
     Route: 042
     Dates: start: 20110701, end: 20110701
  7. BENLYSTA [Suspect]
     Indication: SYSTEMIC LUPUS ERYTHEMATOSUS
     Dosage: 613 mg, 1 in 14 d, intravenous drip
     Route: 041
     Dates: start: 20110715, end: 20110715
  8. BENLYSTA [Suspect]
     Indication: SYSTEMIC LUPUS ERYTHEMATOSUS
     Dosage: 613 mf, 1 in 1 28 d
     Dates: start: 20110729, end: 20110729
  9. BENLYSTA [Suspect]
     Indication: SYSTEMIC LUPUS ERYTHEMATOSUS
     Dosage: 613 mg, 1 in 28 d
     Dates: start: 20110827, end: 20110827
  10. BENLYSTA [Suspect]
     Indication: SYSTEMIC LUPUS ERYTHEMATOSUS
     Dosage: 613 mg, 1 in 28 d
     Dates: start: 20110921, end: 20110921
  11. BENLYSTA [Suspect]
  12. PLAQUENIL (HYDROXYCHLOROQUINE SULFATE) (HYDROXYCHLOROQUINE SULFATE) [Concomitant]
  13. PREDNISONE [Concomitant]
  14. METHOTREXATE [Concomitant]
  15. VITAMIN D (ERGOCALCIFEROL) (ERGOCALCIFEROL) [Concomitant]
  16. AMBIEN CR (ZOLPIDEM TARTRATE) (ZOLPIDEM TARTRATE) [Concomitant]
  17. FOLIC ACID [Concomitant]
  18. HYDROCODONE (HYDROCODONE) (HYDROCODONE) [Concomitant]
  19. ULTRACET (ULTRACET) (PARACETAMOL, TRAMADOL HYDROCHLORIDE) [Concomitant]
  20. OMEPRAZOLE [Concomitant]

REACTIONS (1)
  - BACK PAIN [None]
